FAERS Safety Report 24883646 (Version 2)
Quarter: 2025Q1

REPORT INFORMATION
  Report Type: Spontaneous
  Country: FR (occurrence: FR)
  Receive Date: 20250124
  Receipt Date: 20250214
  Transmission Date: 20250408
  Serious: Yes (Hospitalization)
  Sender: TEVA
  Company Number: None

PATIENT
  Age: 83 Year
  Sex: Male
  Weight: 75 kg

DRUGS (12)
  1. TRAMADOL [Suspect]
     Active Substance: TRAMADOL
     Indication: Intentional overdose
     Route: 048
     Dates: start: 20241225, end: 20241225
  2. AMOXICILLIN\CLAVULANIC ACID [Concomitant]
     Active Substance: AMOXICILLIN\CLAVULANIC ACID
     Indication: Pneumonia
     Dosage: AMOXICILLINE/ACIDE CLAVULANIQUE ARROW 1 G/125 MG ADULTS, POWDER FOR ORAL SUSPENSION IN SACHET (AM...
     Route: 042
     Dates: start: 20241228, end: 20241231
  3. RAMIPRIL [Concomitant]
     Active Substance: RAMIPRIL
     Indication: Product used for unknown indication
     Dosage: SCORED TABLET
     Route: 048
     Dates: start: 20241227, end: 20241231
  4. LOVENOX [Concomitant]
     Active Substance: ENOXAPARIN SODIUM
     Indication: Product used for unknown indication
     Route: 058
     Dates: start: 20250102, end: 20250115
  5. LOVENOX [Concomitant]
     Active Substance: ENOXAPARIN SODIUM
     Indication: Product used for unknown indication
     Route: 058
     Dates: start: 20241227, end: 20241231
  6. ATORVASTATIN CALCIUM [Concomitant]
     Active Substance: ATORVASTATIN CALCIUM
     Indication: Hypercholesterolaemia
     Route: 048
     Dates: start: 20241227, end: 20241231
  7. IVABRADINE ARROW [Concomitant]
     Indication: Cardiomyopathy
     Dosage: SCORED FILM-COATED TABLET
     Route: 048
     Dates: start: 20241228, end: 20241231
  8. MIANSERIN HYDROCHLORIDE [Concomitant]
     Active Substance: MIANSERIN HYDROCHLORIDE
     Indication: Depression
     Dosage: SCORED FILM-COATED TABLET
     Route: 048
     Dates: start: 20241228, end: 20241231
  9. SYMBICORT [Concomitant]
     Active Substance: BUDESONIDE\FORMOTEROL FUMARATE DIHYDRATE
     Indication: Chronic obstructive pulmonary disease
     Dosage: SYMBICORT TURBUHALER
     Route: 065
     Dates: start: 20241228
  10. CLOBAZAM [Concomitant]
     Active Substance: CLOBAZAM
     Indication: Tonic clonic movements
     Route: 048
     Dates: start: 20250101, end: 20250114
  11. CLOBAZAM [Concomitant]
     Active Substance: CLOBAZAM
     Indication: Tonic clonic movements
     Route: 048
     Dates: start: 20241228, end: 20241231
  12. CLOBAZAM [Concomitant]
     Active Substance: CLOBAZAM
     Indication: Tonic clonic movements
     Route: 048
     Dates: start: 20250115, end: 20250117

REACTIONS (1)
  - Acute cholecystitis necrotic [Recovering/Resolving]

NARRATIVE: CASE EVENT DATE: 20250101
